FAERS Safety Report 16431952 (Version 3)
Quarter: 2023Q2

REPORT INFORMATION
  Report Type: Report from Study
  Country: IT (occurrence: IT)
  Receive Date: 20190614
  Receipt Date: 20230602
  Transmission Date: 20230721
  Serious: Yes (Hospitalization, Other)
  Sender: FDA-Public Use
  Company Number: IT-002147023-PHHY2019IT128045

PATIENT

DRUGS (19)
  1. RUXOLITINIB [Suspect]
     Active Substance: RUXOLITINIB
     Indication: Myelofibrosis
     Dosage: 40 MG PER DAY
     Route: 048
     Dates: start: 20180514, end: 20180827
  2. RUXOLITINIB [Suspect]
     Active Substance: RUXOLITINIB
     Dosage: UNK (TOTAL DAILY DOSE 40)
     Route: 065
     Dates: start: 20180514, end: 20180827
  3. RUXOLITINIB [Suspect]
     Active Substance: RUXOLITINIB
     Dosage: UNK (TOTAL DAILY DOSE 30)
     Route: 065
     Dates: start: 20180828, end: 20190303
  4. ASPIRIN [Concomitant]
     Active Substance: ASPIRIN
     Indication: Essential thrombocythaemia
     Dosage: UNK
     Route: 065
     Dates: start: 2003
  5. FLUDARABINE PHOSPHATE [Concomitant]
     Active Substance: FLUDARABINE PHOSPHATE
     Indication: Chemotherapy
     Dosage: 30 MG (30MG/MQ X 5 DAYS)
     Route: 065
     Dates: start: 20190126, end: 20190202
  6. BUSULFAN [Concomitant]
     Active Substance: BUSULFAN
     Indication: Chemotherapy
     Dosage: 0.8 MG/KG 90.8 MG/KG, X 4/DAY FOR 2 DAYS)
     Route: 065
     Dates: start: 20190126, end: 20190202
  7. BUSULFAN [Concomitant]
     Active Substance: BUSULFAN
     Dosage: 0.8 MG/KG, X 2/DAY PER 1 DAY
     Route: 065
  8. CYCLOSPORINE [Concomitant]
     Active Substance: CYCLOSPORINE
     Indication: Prophylaxis against graft versus host disease
     Dosage: 3 MG/KG
     Route: 065
     Dates: start: 20190205, end: 20190426
  9. LAPINE T-LYMPHOCYTE IMMUNE GLOBULIN [Concomitant]
     Active Substance: LAPINE T-LYMPHOCYTE IMMUNE GLOBULIN
     Indication: Prophylaxis against graft versus host disease
     Dosage: 0.5 MG/KG (0.5 MG/KG, DAY -3)
     Route: 065
     Dates: start: 20190126, end: 20190203
  10. LAPINE T-LYMPHOCYTE IMMUNE GLOBULIN [Concomitant]
     Active Substance: LAPINE T-LYMPHOCYTE IMMUNE GLOBULIN
     Dosage: 2 MG/KG (2 MG/KG, DAY-2)
     Route: 065
  11. LAPINE T-LYMPHOCYTE IMMUNE GLOBULIN [Concomitant]
     Active Substance: LAPINE T-LYMPHOCYTE IMMUNE GLOBULIN
     Dosage: 2.5 MG/KG, DAY-1
     Route: 065
  12. METHOTREXATE SODIUM [Concomitant]
     Active Substance: METHOTREXATE SODIUM
     Indication: Prophylaxis against graft versus host disease
     Dosage: 10-8 MG/MQ DAYS +1, +3, +6
     Route: 065
     Dates: start: 20190205, end: 20190211
  13. METHOTREXATE SODIUM [Concomitant]
     Active Substance: METHOTREXATE SODIUM
     Indication: Chemotherapy
  14. DIFLUCAN [Concomitant]
     Active Substance: FLUCONAZOLE
     Indication: Infection prophylaxis
     Dosage: UNK
     Route: 065
     Dates: start: 20190204
  15. BACTRIM [Concomitant]
     Active Substance: SULFAMETHOXAZOLE\TRIMETHOPRIM
     Indication: Gastrointestinal disorder prophylaxis
     Dosage: 100 MG
     Route: 065
     Dates: start: 20190204
  16. BACTRIM [Concomitant]
     Active Substance: SULFAMETHOXAZOLE\TRIMETHOPRIM
     Indication: Infection prophylaxis
  17. ACYCLOVIR [Concomitant]
     Active Substance: ACYCLOVIR
     Indication: Infection prophylaxis
     Dosage: 400 MG, TID
     Route: 065
     Dates: start: 20190204
  18. FUROSEMIDE [Concomitant]
     Active Substance: FUROSEMIDE
     Indication: Product used for unknown indication
     Route: 065
  19. ACETAMINOPHEN [Concomitant]
     Active Substance: ACETAMINOPHEN
     Indication: Product used for unknown indication
     Dosage: UNK
     Route: 065

REACTIONS (13)
  - Asthenia [Recovered/Resolved]
  - Azotaemia [Recovering/Resolving]
  - Dehydration [Unknown]
  - Arrhythmia [Recovering/Resolving]
  - Fatigue [Unknown]
  - Blood glucose increased [Unknown]
  - Graft versus host disease in liver [Recovering/Resolving]
  - Decreased appetite [Recovered/Resolved]
  - Pruritus [Recovered/Resolved]
  - Jaundice [Recovered/Resolved]
  - Nausea [Unknown]
  - Vomiting [Recovered/Resolved]
  - Blood sodium decreased [Unknown]

NARRATIVE: CASE EVENT DATE: 20190219
